FAERS Safety Report 11502161 (Version 2)
Quarter: 2015Q3

REPORT INFORMATION
  Report Type: Other
  Country: NE (occurrence: NE)
  Receive Date: 20150914
  Receipt Date: 20150923
  Transmission Date: 20151125
  Serious: Yes (Hospitalization)
  Sender: FDA-Public Use
  Company Number: NE-ENDO PHARMACEUTICALS INC-2015-002754

PATIENT
  Age: 23 Year
  Sex: Female

DRUGS (5)
  1. PHENOBARBITAL. [Suspect]
     Active Substance: PHENOBARBITAL
     Indication: EPILEPSY
     Dosage: 200 MG EVERY EVENING
     Route: 065
     Dates: start: 20110909, end: 201110
  2. HALOPERIDOL TABLETS [Suspect]
     Active Substance: HALOPERIDOL
     Indication: PSYCHIATRIC SYMPTOM
     Dosage: 20 MG
     Route: 065
     Dates: start: 201110, end: 201110
  3. DIAZEPAM. [Suspect]
     Active Substance: DIAZEPAM
     Indication: PSYCHIATRIC SYMPTOM
     Dosage: 60 MG/DAY
     Route: 065
     Dates: start: 201110, end: 201110
  4. TRIHEXYPHENIDYL HYDROCHLORIDE TABLETS [Suspect]
     Active Substance: TRIHEXYPHENIDYL HYDROCHLORIDE
     Indication: PROPHYLAXIS
     Route: 065
     Dates: start: 201110, end: 201110
  5. CHLORPROMAZINE. [Suspect]
     Active Substance: CHLORPROMAZINE
     Indication: PSYCHIATRIC SYMPTOM
     Dosage: 400 MG, TWICE DAILY
     Route: 065
     Dates: start: 201110, end: 201110

REACTIONS (1)
  - Toxic epidermal necrolysis [Recovered/Resolved]

NARRATIVE: CASE EVENT DATE: 201110
